FAERS Safety Report 21468823 (Version 1)
Quarter: 2022Q4

REPORT INFORMATION
  Report Type: Spontaneous
  Country: CN (occurrence: None)
  Receive Date: 20221018
  Receipt Date: 20221018
  Transmission Date: 20230113
  Serious: Yes (Death, Hospitalization, Other)
  Sender: FDA-Public Use
  Company Number: CN-VistaPharm, Inc.-VER202210-000823

PATIENT
  Age: 29 Year
  Sex: Female
  Weight: 75 kg

DRUGS (5)
  1. ACETAMINOPHEN\HYDROCODONE [Suspect]
     Active Substance: ACETAMINOPHEN\HYDROCODONE
     Indication: Product used for unknown indication
     Dosage: 0.5 G (STANDARD/THERAPEUTIC DOSE)
  2. ADEMETIONINE [Concomitant]
     Active Substance: ADEMETIONINE
     Indication: Cholestasis
     Dosage: UNKNOWN
     Route: 048
  3. ADEMETIONINE [Concomitant]
     Active Substance: ADEMETIONINE
     Indication: Cholestasis of pregnancy
  4. URSODIOL [Concomitant]
     Active Substance: URSODIOL
     Indication: Cholestasis
     Dosage: UNKNOWN
     Route: 048
  5. URSODIOL [Concomitant]
     Active Substance: URSODIOL
     Indication: Cholestasis of pregnancy

REACTIONS (4)
  - Multiple organ dysfunction syndrome [Fatal]
  - Hepatic encephalopathy [Unknown]
  - Hepatic failure [Fatal]
  - Maternal exposure during pregnancy [Unknown]
